FAERS Safety Report 7473018-2 (Version None)
Quarter: 2011Q2

REPORT INFORMATION
  Report Type: 
  Country: None (occurrence: None)
  Receive Date: 20110511
  Receipt Date: 20110502
  Transmission Date: 20111010
  Serious: Yes (Other)
  Sender: FDA-Public Use
  Company Number: AR-ROCHE-774701

PATIENT
  Sex: Female

DRUGS (3)
  1. HERCEPTIN [Suspect]
     Dosage: FREQ: EVERY 21 DAYS.
     Route: 042
     Dates: start: 20110105
  2. PACLITAXEL [Concomitant]
     Indication: BREAST CANCER
     Route: 042
     Dates: start: 20100901, end: 20101101
  3. HERCEPTIN [Suspect]
     Indication: BREAST CANCER
     Dosage: FREQ: EVERY 21 DAYS.
     Route: 042
     Dates: start: 20100901, end: 20101101

REACTIONS (2)
  - NEUTROPENIA [None]
  - MYOCARDIAL INFARCTION [None]
